FAERS Safety Report 6245077-6 (Version None)
Quarter: 2009Q2

REPORT INFORMATION
  Report Type: 
  Country: None (occurrence: None)
  Receive Date: 20090625
  Receipt Date: 20090616
  Transmission Date: 20091009
  Serious: Yes (Death, Life-Threatening, Hospitalization)
  Sender: FDA-Public Use
  Company Number: GB-JNJFOC-20090306858

PATIENT
  Age: 66 Year
  Sex: Male
  Weight: 70 kg

DRUGS (7)
  1. REMICADE [Suspect]
     Route: 042
  2. REMICADE [Suspect]
     Indication: RHEUMATOID ARTHRITIS
     Route: 042
  3. METHOTREXATE [Concomitant]
  4. ACETAMINOPHEN W/ CODEINE [Concomitant]
  5. FOLIC ACID [Concomitant]
  6. HCQ [Concomitant]
  7. NIZATIDINE [Concomitant]

REACTIONS (1)
  - NEOPLASM MALIGNANT [None]
